FAERS Safety Report 18941904 (Version 2)
Quarter: 2021Q1

REPORT INFORMATION
  Report Type: Spontaneous
  Country: PT (occurrence: PT)
  Receive Date: 20210225
  Receipt Date: 20210302
  Transmission Date: 20210420
  Serious: Yes (Death)
  Sender: FDA-Public Use
  Company Number: PT-GILEAD-2021-0518626

PATIENT
  Age: 66 Year
  Sex: Female
  Weight: 70 kg

DRUGS (14)
  1. DEXAMETHASONE. [Concomitant]
     Active Substance: DEXAMETHASONE
  2. CLARITHROMYCIN. [Concomitant]
     Active Substance: CLARITHROMYCIN
  3. PARACETAMOL [Concomitant]
     Active Substance: ACETAMINOPHEN
  4. AMOXICILLIN + CLAVULANIC ACID [Concomitant]
     Active Substance: AMOXICILLIN\CLAVULANIC ACID
  5. METILPREDNISOLONA [METHYLPREDNISOLONE] [Concomitant]
     Active Substance: METHYLPREDNISOLONE
  6. SALBUTAMOL [Concomitant]
     Active Substance: ALBUTEROL
  7. METOCLOPRAMIDE. [Concomitant]
     Active Substance: METOCLOPRAMIDE
  8. IPRATROPIUM BROMIDE. [Concomitant]
     Active Substance: IPRATROPIUM BROMIDE
  9. ENOXAPARIN SODIUM. [Concomitant]
     Active Substance: ENOXAPARIN SODIUM
  10. CEFTRIAXONE. [Concomitant]
     Active Substance: CEFTRIAXONE
  11. VEKLURY [Suspect]
     Active Substance: REMDESIVIR
     Indication: COVID-19 PNEUMONIA
     Dosage: TERAP?UTICA PREVISTA DE 5 DIAS COM 200 MG 1XDIA IV
     Route: 042
     Dates: start: 20210124, end: 20210126
  12. PERINDOPRIL [Concomitant]
     Active Substance: PERINDOPRIL
  13. POTASSIUM CHLORIDE. [Concomitant]
     Active Substance: POTASSIUM CHLORIDE
  14. OMEPRAZOLE. [Concomitant]
     Active Substance: OMEPRAZOLE

REACTIONS (1)
  - Renal impairment [Fatal]

NARRATIVE: CASE EVENT DATE: 20210126
